FAERS Safety Report 17792079 (Version 2)
Quarter: 2020Q2

REPORT INFORMATION
  Report Type: Report from Study
  Country: US (occurrence: US)
  Receive Date: 20200515
  Receipt Date: 20200521
  Transmission Date: 20200714
  Serious: No
  Sender: FDA-Public Use
  Company Number: US-PFIZER INC-2020193732

PATIENT
  Age: 27 Year
  Sex: Female
  Weight: 68 kg

DRUGS (9)
  1. NOREPINEPHRINE BITARTRATE. [Suspect]
     Active Substance: NOREPINEPHRINE BITARTRATE
     Indication: PULMONARY ARTERIAL HYPERTENSION
     Dosage: 0.1 UG/KG (0.1 MICROGRAM/KILOGRAM, QMINUTE, DURING PREGNANCY)
     Route: 065
  2. DOBUTAMINE HCL [Suspect]
     Active Substance: DOBUTAMINE HYDROCHLORIDE
     Indication: PULMONARY ARTERIAL HYPERTENSION
     Dosage: 5 UG/KG (5 MICROGRAM/KILOGRAM, QMINUTE, AFTER DELIVERY)
     Route: 065
  3. DOPAMINE HCL [Suspect]
     Active Substance: DOPAMINE HYDROCHLORIDE
     Indication: PULMONARY ARTERIAL HYPERTENSION
     Dosage: 3 UG/KG (3 MICROGRAM/KILOGRAM, QMINUTE, DURING PREGNANCY)
     Route: 065
  4. EPINEPHRINE. [Suspect]
     Active Substance: EPINEPHRINE
     Indication: PULMONARY ARTERIAL HYPERTENSION
     Dosage: 0.05 UG/KG (0.05 MICROGRAM/KILOGRAM, QMINUTE, AFTER DELIVERY)
     Route: 065
  5. NOREPINEPHRINE BITARTRATE. [Suspect]
     Active Substance: NOREPINEPHRINE BITARTRATE
     Dosage: 0.18 UG/KG (0.18 MICROGRAM/KILOGRAM, QMINUTE, AFTER DELIVERY)
     Route: 065
  6. TREPROSTINIL. [Suspect]
     Active Substance: TREPROSTINIL
     Indication: PULMONARY ARTERIAL HYPERTENSION
     Dosage: 1.25NG/KG/MINUTE (AFTER DELIVERY)
     Route: 042
  7. ILOPROST. [Suspect]
     Active Substance: ILOPROST
     Indication: PULMONARY ARTERIAL HYPERTENSION
     Dosage: 3 UG (3 MICROGRAM/INHALATION)
  8. SILDENAFIL CITRATE. [Suspect]
     Active Substance: SILDENAFIL CITRATE
     Indication: PULMONARY HYPERTENSION
     Dosage: 12.5 MILLIGRAM, QD, AFTER DELIVERY
     Route: 048
  9. TREPROSTINIL. [Suspect]
     Active Substance: TREPROSTINIL
     Dosage: UNK (TITRATED UP TO A MAXIMUM DOSAGE OF 15NG/KG/MINUTE (AFTER DELIVERY))
     Route: 042

REACTIONS (1)
  - Maternal exposure during pregnancy [Recovered/Resolved]
